FAERS Safety Report 9031096 (Version 3)
Quarter: 2013Q1

REPORT INFORMATION
  Report Type: Spontaneous
  Country: US (occurrence: US)
  Receive Date: 20130123
  Receipt Date: 20130208
  Transmission Date: 20140127
  Serious: Yes (Other)
  Sender: FDA-Public Use
  Company Number: US-PFIZER INC-2013026719

PATIENT
  Age: 58 Year
  Sex: Female

DRUGS (1)
  1. LIPITOR [Suspect]
     Indication: CEREBROVASCULAR ACCIDENT
     Dosage: 40 MG, UNK

REACTIONS (3)
  - Upper limb fracture [Unknown]
  - Hand deformity [Unknown]
  - Pain in extremity [Unknown]
